FAERS Safety Report 20254587 (Version 2)
Quarter: 2022Q1

REPORT INFORMATION
  Report Type: Spontaneous
  Country: US (occurrence: US)
  Receive Date: 20211230
  Receipt Date: 20220110
  Transmission Date: 20220424
  Serious: Yes (Hospitalization)
  Sender: FDA-Public Use
  Company Number: US-SA-SAC20211229000419

PATIENT
  Age: 48 Year
  Sex: Female
  Weight: 58.96 kg

DRUGS (11)
  1. DUPIXENT [Suspect]
     Active Substance: DUPILUMAB
     Indication: Dermatitis atopic
     Dosage: 300 MG, QOW
     Route: 058
  2. DUPIXENT [Suspect]
     Active Substance: DUPILUMAB
     Indication: Multiple sclerosis
  3. UPTRAVI [Concomitant]
     Active Substance: SELEXIPAG
  4. VELETRI [Concomitant]
     Active Substance: EPOPROSTENOL
  5. AUBAGIO [Concomitant]
     Active Substance: TERIFLUNOMIDE
     Dosage: 25MG
  6. TOPIRAMATE [Concomitant]
     Active Substance: TOPIRAMATE
  7. SIMVASTATIN [Concomitant]
     Active Substance: SIMVASTATIN
  8. HYDROXYZINE HYDROCHLORIDE [Concomitant]
     Active Substance: HYDROXYZINE HYDROCHLORIDE
  9. LISINOPRIL [Concomitant]
     Active Substance: LISINOPRIL
  10. SERTRALINE HYDROCHLORIDE [Concomitant]
     Active Substance: SERTRALINE HYDROCHLORIDE
  11. MESALAMINE [Concomitant]
     Active Substance: MESALAMINE

REACTIONS (6)
  - Central venous catheterisation [Unknown]
  - Gastrointestinal disorder [Recovering/Resolving]
  - Product use in unapproved indication [Unknown]
  - Sensitive skin [Unknown]
  - Pruritus [Unknown]
  - Nasopharyngitis [Unknown]

NARRATIVE: CASE EVENT DATE: 20211213
